FAERS Safety Report 23868192 (Version 2)
Quarter: 2024Q2

REPORT INFORMATION
  Report Type: Spontaneous
  Country: JP (occurrence: None)
  Receive Date: 20240517
  Receipt Date: 20240628
  Transmission Date: 20240716
  Serious: Yes (Other)
  Sender: FDA-Public Use
  Company Number: 2024A111204

PATIENT
  Age: 76 Year
  Sex: Male

DRUGS (1)
  1. ONDEXXYA [Suspect]
     Active Substance: ANDEXANET ALFA
     Indication: Subarachnoid haemorrhage
     Dosage: DOSE UNKNOWN
     Route: 042

REACTIONS (2)
  - Iliac artery embolism [Unknown]
  - Embolism arterial [Unknown]
